FAERS Safety Report 11754009 (Version 1)
Quarter: 2015Q4

REPORT INFORMATION
  Report Type: Spontaneous
  Country: US (occurrence: US)
  Receive Date: 20151119
  Receipt Date: 20151119
  Transmission Date: 20160304
  Serious: Yes (Other)
  Sender: FDA-Public Use
  Company Number: US-SA-2015SA181678

PATIENT
  Age: 49 Year
  Sex: Male

DRUGS (1)
  1. AUVI-Q [Suspect]
     Active Substance: EPINEPHRINE
     Indication: ANAPHYLACTIC REACTION
     Route: 065
     Dates: start: 201509, end: 20151102

REACTIONS (11)
  - Heart rate abnormal [Unknown]
  - Blood pressure decreased [Unknown]
  - Anaphylactic shock [Unknown]
  - Sensory loss [Unknown]
  - Generalised tonic-clonic seizure [Unknown]
  - Fall [Unknown]
  - Disability [Unknown]
  - Drug ineffective [Unknown]
  - Pulse abnormal [Unknown]
  - Vomiting [Unknown]
  - Condition aggravated [Unknown]

NARRATIVE: CASE EVENT DATE: 20151102
